FAERS Safety Report 14969220 (Version 2)
Quarter: 2018Q3

REPORT INFORMATION
  Report Type: Report from Study
  Country: CL (occurrence: CL)
  Receive Date: 20180604
  Receipt Date: 20180817
  Transmission Date: 20181010
  Serious: Yes (Death, Other)
  Sender: FDA-Public Use
  Company Number: CL-PFIZER INC-2018223991

PATIENT

DRUGS (6)
  1. CARBOPLATIN. [Suspect]
     Active Substance: CARBOPLATIN
     Indication: RETINOBLASTOMA
     Dosage: 500MG/M2/D, DAYS 1 AND 2, CYCLIC AT WEEKS 3, 9, 15, AND 21
  2. SODIUM?2?MERCAPTOETHANE SULFONATE [Concomitant]
  3. CYCLOPHOSPHAMIDE. [Suspect]
     Active Substance: CYCLOPHOSPHAMIDE
     Indication: RETINOBLASTOMA
     Dosage: 65MG/KG/D, CYCLIC AT WEEKS 0, 6, 12, AND 18
  4. VINCRISTINE SULFATE. [Suspect]
     Active Substance: VINCRISTINE SULFATE
     Indication: RETINOBLASTOMA
     Dosage: 0.05MG/KG/D CYCLIC AT WEEKS 0, 6, 12, 18
  5. ETOPOSIDE. [Suspect]
     Active Substance: ETOPOSIDE
     Indication: RETINOBLASTOMA
     Dosage: 100MG/M2/D, DAYS 1?3, CYCLIC AT WEEKS 3, 9, 15, AND 21
  6. IDARUBICIN HCL [Suspect]
     Active Substance: IDARUBICIN HYDROCHLORIDE
     Indication: RETINOBLASTOMA
     Dosage: 10MG/M2/D, CYCLIC AT WEEKS 0, 6, 12, AND 18

REACTIONS (2)
  - Neutropenic sepsis [Fatal]
  - Acinetobacter infection [Fatal]
